FAERS Safety Report 9987022 (Version 1)
Quarter: 2014Q1

REPORT INFORMATION
  Report Type: Spontaneous
  Country: IL (occurrence: IL)
  Receive Date: 20140307
  Receipt Date: 20140307
  Transmission Date: 20141002
  Serious: Yes (Life-Threatening, Hospitalization)
  Sender: FDA-Public Use
  Company Number: IL-B.I. PHARMACEUTICALS,INC./RIDGEFIELD-2014-BI-10034RI

PATIENT
  Age: 77 Year
  Sex: Female

DRUGS (6)
  1. PRADAXA [Suspect]
     Indication: ATRIAL FIBRILLATION
     Dosage: 300 MG
     Route: 065
     Dates: start: 201402, end: 20140306
  2. CARDILOC (BISOPROLOL [Concomitant]
     Indication: HYPERTENSION
     Route: 048
  3. LEVOTHYROXINE [Concomitant]
     Indication: HYPOTHYROIDISM
     Route: 048
  4. ATORVASTIN [Concomitant]
     Indication: HYPERLIPIDAEMIA
     Route: 065
  5. LOSARDEX PLUS (LOSARTAN / HCTZ [Concomitant]
     Indication: HYPERTENSION
     Route: 065
  6. ISOSORBIDE MONONITRATE [Concomitant]
     Indication: MYOCARDIAL ISCHAEMIA
     Route: 065

REACTIONS (5)
  - Acute myocardial infarction [Not Recovered/Not Resolved]
  - Cardiac failure [Not Recovered/Not Resolved]
  - Pulmonary oedema [Recovered/Resolved]
  - Haematuria [Unknown]
  - Haemoglobin decreased [Not Recovered/Not Resolved]
